FAERS Safety Report 8402139-2 (Version None)
Quarter: 2012Q2

REPORT INFORMATION
  Report Type: 
  Country: None (occurrence: None)
  Receive Date: 20120529
  Receipt Date: 20120516
  Transmission Date: 20120825
  Serious: Yes (Other)
  Sender: FDA-Public Use
  Company Number: 2011SP033925

PATIENT
  Age: 25 Year
  Sex: Female

DRUGS (6)
  1. OILEZZ (DESOGESTREL/ETHINYLESTRADIOL /00570801/) [Suspect]
     Indication: CONTRACEPTION
     Dosage: 1 DF;QD; 1 DF;QD;PO
     Route: 048
     Dates: start: 20110714, end: 20110719
  2. OILEZZ (DESOGESTREL/ETHINYLESTRADIOL /00570801/) [Suspect]
     Indication: ACNE
     Dosage: 1 DF;QD; 1 DF;QD;PO
     Route: 048
     Dates: start: 20110714, end: 20110719
  3. OILEZZ (DESOGESTREL/ETHINYLESTRADIOL /00570801/) [Suspect]
     Indication: CONTRACEPTION
     Dosage: 1 DF;QD; 1 DF;QD;PO
     Route: 048
     Dates: start: 20120501, end: 20120501
  4. OILEZZ (DESOGESTREL/ETHINYLESTRADIOL /00570801/) [Suspect]
     Indication: ACNE
     Dosage: 1 DF;QD; 1 DF;QD;PO
     Route: 048
     Dates: start: 20120501, end: 20120501
  5. OILEZZ (DESOGESTREL/ETHINYLESTRADIOL /00570801/) [Suspect]
     Indication: CONTRACEPTION
     Dosage: 1 DF;QD; 1 DF;QD;PO
     Route: 048
     Dates: start: 20110101
  6. OILEZZ (DESOGESTREL/ETHINYLESTRADIOL /00570801/) [Suspect]
     Indication: ACNE
     Dosage: 1 DF;QD; 1 DF;QD;PO
     Route: 048
     Dates: start: 20110101

REACTIONS (2)
  - HEART RATE INCREASED [None]
  - ANGINA PECTORIS [None]
